FAERS Safety Report 5811063-0 (Version None)
Quarter: 2008Q3

REPORT INFORMATION
  Report Type: 
  Country: None (occurrence: None)
  Receive Date: 20080710
  Receipt Date: 20080625
  Transmission Date: 20090109
  Serious: Yes (Hospitalization)
  Sender: FDA-Public Use
  Company Number: 2008S1011801

PATIENT
  Age: 95 Year
  Sex: Female

DRUGS (6)
  1. DIGOXIN [Suspect]
     Indication: ATRIAL FIBRILLATION
     Dosage: 0.25 MG; DAILY; ORAL
     Route: 048
     Dates: start: 20020415, end: 20080312
  2. ENALAPRIL MALEATE [Suspect]
     Indication: HYPERTENSION
     Dosage: 30 MG; DAILY; ORAL
     Route: 048
     Dates: start: 20050101, end: 20080312
  3. LOBIVON (NEBIVOLOL HYDROCHLORIDE) [Suspect]
     Indication: CARDIAC FAILURE
     Dosage: 2.5 MG; DAILY; ORAL
     Route: 048
     Dates: start: 20070101, end: 20080312
  4. OMEPRAZOLE (CON.) [Concomitant]
  5. PLAVIX /01220701/ (CON.) [Concomitant]
  6. NITROGLICERINA (CON.) [Concomitant]

REACTIONS (3)
  - BRADYCARDIA [None]
  - RENAL FAILURE [None]
  - THERAPEUTIC AGENT TOXICITY [None]
